FAERS Safety Report 9203756 (Version 2)
Quarter: 2013Q2

REPORT INFORMATION
  Report Type: Report from Study
  Country: FR (occurrence: FR)
  Receive Date: 20130402
  Receipt Date: 20130425
  Transmission Date: 20140414
  Serious: Yes (Death, Hospitalization)
  Sender: FDA-Public Use
  Company Number: FR-BRISTOL-MYERS SQUIBB COMPANY-18724187

PATIENT
  Age: 63 Year
  Sex: Male

DRUGS (3)
  1. ERBITUX SOLN FOR INF [Suspect]
     Indication: HEAD AND NECK CANCER
     Dosage: RECENT INF:13MAR2013
     Route: 042
     Dates: start: 20130313, end: 20130313
  2. CISPLATIN FOR INJ [Suspect]
     Indication: HEAD AND NECK CANCER
     Dosage: RECENT INF:13MAR2013
     Route: 042
     Dates: start: 20130313, end: 20130313
  3. 5-FLUOROURACIL [Suspect]
     Indication: HEAD AND NECK CANCER
     Dosage: INF.?FROM DAY1-4.
     Route: 042
     Dates: start: 20130313, end: 20130317

REACTIONS (1)
  - Respiratory failure [Fatal]
